FAERS Safety Report 9312233 (Version 1)
Quarter: 2013Q2

REPORT INFORMATION
  Report Type: Report from Study
  Country: US (occurrence: US)
  Receive Date: 20130528
  Receipt Date: 20130528
  Transmission Date: 20140414
  Serious: Yes (Death, Hospitalization)
  Sender: FDA-Public Use
  Company Number: US-BAYER-2013-029452

PATIENT
  Sex: Male

DRUGS (6)
  1. SORAFENIB (RAF KINASE INHIBITOR) [Suspect]
     Indication: ACUTE MYELOID LEUKAEMIA
     Dosage: UNK
  2. SORAFENIB (RAF KINASE INHIBITOR) [Suspect]
     Indication: ACUTE MYELOID LEUKAEMIA
     Dosage: 800 MG, BID(D1-28)
     Route: 048
     Dates: start: 20130201, end: 20130205
  3. FILGRASTIM [Suspect]
     Indication: ACUTE MYELOID LEUKAEMIA
     Dosage: UNK
  4. FILGRASTIM [Suspect]
     Indication: ACUTE MYELOID LEUKAEMIA
     Dosage: 780 ?G, QOD DAYS 1,3,5,7,8,11,13
     Route: 058
     Dates: start: 20130201, end: 20130205
  5. PLERIXAFOR [Suspect]
     Indication: ACUTE MYELOID LEUKAEMIA
     Dosage: UNK
  6. PLERIXAFOR [Suspect]
     Indication: ACUTE MYELOID LEUKAEMIA
     Dosage: 18318 ?G, QOD DAYS 1,3,5,7,8,11,13
     Route: 058
     Dates: start: 20130201, end: 20130205

REACTIONS (3)
  - Pericarditis [None]
  - Nervous system disorder [None]
  - Sudden death [Fatal]
